FAERS Safety Report 5590331-4 (Version None)
Quarter: 2008Q1

REPORT INFORMATION
  Report Type: 
  Country: None (occurrence: None)
  Receive Date: 20080114
  Receipt Date: 20080108
  Transmission Date: 20080703
  Serious: Yes (Hospitalization)
  Sender: FDA-Public Use
  Company Number: GB-RANBAXY-2008RR-12444

PATIENT

DRUGS (8)
  1. DISPERSIBLE ASPIRIN 75MG TABLETS BP [Suspect]
     Indication: PROPHYLAXIS
     Dosage: 75 MG, QD
     Route: 048
     Dates: start: 19981221, end: 20071204
  2. IBUPROFEN TABLETS BP 400MG [Suspect]
     Indication: PAIN
     Dosage: 400 MG, UNK
     Route: 048
     Dates: end: 20071204
  3. AMOXICILLIN CAPSULES BP 500MG [Concomitant]
     Indication: RESPIRATORY TRACT INFECTION
     Dosage: 500 MG, TID
     Route: 048
     Dates: start: 20071116, end: 20071121
  4. BENDROFLUMETHIAZIDE [Concomitant]
     Indication: HYPERTENSION
     Dosage: 2.5 MG, QD
     Route: 048
     Dates: start: 19990323
  5. CORACTEN XL [Concomitant]
     Indication: MYOCARDIAL ISCHAEMIA
     Dosage: 30 MG, QD
     Route: 048
     Dates: start: 20031118
  6. LEVOTHYROXINE SODIUM [Concomitant]
     Indication: HYPOTHYROIDISM
     Dosage: 50 UG, QD
     Dates: start: 20070308
  7. LISINOPRIL [Concomitant]
     Indication: HYPERTENSION
     Dosage: 20 MG, QD
     Route: 048
     Dates: start: 20000510
  8. SIMVASTATIN 10MG TABLETS [Concomitant]
     Indication: HYPERCHOLESTEROLAEMIA
     Dosage: 10 MG, QD
     Route: 048
     Dates: start: 20031007

REACTIONS (2)
  - GASTRIC ULCER [None]
  - MELAENA [None]
